FAERS Safety Report 22056949 (Version 1)
Quarter: 2023Q1

REPORT INFORMATION
  Report Type: Spontaneous
  Country: BR (occurrence: BR)
  Receive Date: 20230303
  Receipt Date: 20230303
  Transmission Date: 20230417
  Serious: Yes (Hospitalization, Other)
  Sender: FDA-Public Use
  Company Number: BR-SA-SAC20230301000035

PATIENT
  Age: 66 Year
  Sex: Female

DRUGS (2)
  1. SARCLISA [Suspect]
     Active Substance: ISATUXIMAB-IRFC
     Dosage: UNK
     Route: 065
     Dates: start: 20230218, end: 20230218
  2. CARFILZOMIB [Concomitant]
     Active Substance: CARFILZOMIB

REACTIONS (5)
  - Pulmonary alveolar haemorrhage [Unknown]
  - Chest discomfort [Unknown]
  - Haemoptysis [Unknown]
  - Oxygen saturation decreased [Unknown]
  - Dyspnoea [Unknown]

NARRATIVE: CASE EVENT DATE: 20230218
